FAERS Safety Report 19361887 (Version 1)
Quarter: 2021Q2

REPORT INFORMATION
  Report Type: Spontaneous
  Country: JP (occurrence: JP)
  Receive Date: 20210601
  Receipt Date: 20210601
  Transmission Date: 20210717
  Serious: Yes (Hospitalization, Other)
  Sender: FDA-Public Use
  Company Number: JP-OXFORD PHARMACEUTICALS, LLC-2112191

PATIENT
  Age: 54 Year
  Sex: Female
  Weight: 77.5 kg

DRUGS (4)
  1. ETIZOLAM [Suspect]
     Active Substance: ETIZOLAM
     Route: 048
  2. OLMESARTAN MEDOXOMIL. [Suspect]
     Active Substance: OLMESARTAN MEDOXOMIL
     Route: 048
  3. AMLODIPINE BESYLATE. [Suspect]
     Active Substance: AMLODIPINE BESYLATE
     Indication: SUICIDE ATTEMPT
     Route: 048
  4. BROTIZOLAM [Suspect]
     Active Substance: BROTIZOLAM
     Route: 048

REACTIONS (5)
  - Overdose [Unknown]
  - Hypotension [Recovered/Resolved]
  - Distributive shock [Recovered/Resolved]
  - Mental status changes [Recovered/Resolved]
  - Toxicity to various agents [Recovered/Resolved]
